FAERS Safety Report 26165518 (Version 1)
Quarter: 2025Q4

REPORT INFORMATION
  Report Type: Spontaneous
  Country: US (occurrence: US)
  Receive Date: 20251216
  Receipt Date: 20251216
  Transmission Date: 20260117
  Serious: No
  Sender: NEUROCRINE BIOSCIENCES
  Company Number: US-NEUROCRINE BIOSCIENCES INC.-2025NBI16375

PATIENT

DRUGS (1)
  1. CRENESSITY [Suspect]
     Active Substance: CRINECERFONT
     Indication: Product used for unknown indication
     Route: 061

REACTIONS (2)
  - Liquid product physical issue [Unknown]
  - Wrong technique in product usage process [Unknown]
